FAERS Safety Report 8406837-6 (Version None)
Quarter: 2012Q2

REPORT INFORMATION
  Report Type: 
  Country: None (occurrence: None)
  Receive Date: 20120604
  Receipt Date: 20120524
  Transmission Date: 20120825
  Serious: Yes (Other)
  Sender: FDA-Public Use
  Company Number: CA-JNJFOC-20120519058

PATIENT
  Sex: Male
  Weight: 105 kg

DRUGS (5)
  1. REMICADE [Suspect]
     Dosage: 35TH INFUSION
     Route: 042
     Dates: start: 20120524
  2. NAPROXEN [Concomitant]
     Route: 065
  3. REMICADE [Suspect]
     Indication: ANKYLOSING SPONDYLITIS
     Route: 042
     Dates: start: 20070206
  4. PREVACID [Concomitant]
     Route: 065
  5. BLOOD PRESSURE MEDICATION NOS [Concomitant]
     Route: 065

REACTIONS (1)
  - NEPHROLITHIASIS [None]
